FAERS Safety Report 20408928 (Version 1)
Quarter: 2022Q1

REPORT INFORMATION
  Report Type: Spontaneous
  Country: CH (occurrence: None)
  Receive Date: 20220201
  Receipt Date: 20220201
  Transmission Date: 20220424
  Serious: No
  Sender: FDA-Public Use
  Company Number: CH-ROCHE-3007893

PATIENT
  Age: 26 Year
  Sex: Female
  Weight: 62 kg

DRUGS (5)
  1. OCREVUS [Suspect]
     Active Substance: OCRELIZUMAB
     Indication: Relapsing-remitting multiple sclerosis
     Route: 042
     Dates: start: 20211201
  2. OCREVUS [Suspect]
     Active Substance: OCRELIZUMAB
     Route: 042
     Dates: start: 20211112
  3. COMIRNATY [Concomitant]
     Active Substance: TOZINAMERAN
     Dates: start: 20210527
  4. COMIRNATY [Concomitant]
     Active Substance: TOZINAMERAN
     Dates: start: 20210624
  5. COMIRNATY [Concomitant]
     Active Substance: TOZINAMERAN
     Dates: start: 20210929

REACTIONS (1)
  - COVID-19 [Recovered/Resolved with Sequelae]

NARRATIVE: CASE EVENT DATE: 20211209
